FAERS Safety Report 19401391 (Version 1)
Quarter: 2021Q2

REPORT INFORMATION
  Report Type: Spontaneous
  Country: EG (occurrence: EG)
  Receive Date: 20210611
  Receipt Date: 20210611
  Transmission Date: 20210717
  Serious: Yes (Other)
  Sender: FDA-Public Use
  Company Number: EG-HIKMA PHARMACEUTICALS USA INC.-EG-H14001-21-02671

PATIENT
  Age: 45 Year
  Sex: Female

DRUGS (2)
  1. UNITAXEL [Suspect]
     Active Substance: PACLITAXEL
     Indication: BREAST CANCER
     Route: 041
     Dates: start: 20210424
  2. UNITAXEL [Suspect]
     Active Substance: PACLITAXEL
     Route: 041
     Dates: start: 20210424

REACTIONS (3)
  - Gait disturbance [Unknown]
  - Hypoaesthesia [Unknown]
  - Pain in extremity [Unknown]

NARRATIVE: CASE EVENT DATE: 20210424
